FAERS Safety Report 7811840-0 (Version None)
Quarter: 2011Q4

REPORT INFORMATION
  Report Type: 
  Country: None (occurrence: None)
  Receive Date: 20111013
  Receipt Date: 20110930
  Transmission Date: 20120403
  Serious: Yes (Other)
  Sender: FDA-Public Use
  Company Number: US-UCBSA-042073

PATIENT
  Age: 24 Hour
  Sex: Female
  Weight: 0.8 kg

DRUGS (5)
  1. PROGESTERONE [Concomitant]
     Route: 064
     Dates: start: 20101222, end: 20110123
  2. KEPPRA [Suspect]
     Indication: EPILEPSY
     Dosage: DAILY DOSE: 1500 MG
     Route: 064
     Dates: start: 20101209, end: 20110123
  3. PRENATAL VITAMINS [Concomitant]
     Indication: PREGNANCY
     Dosage: 1 PILL QD
     Route: 064
     Dates: start: 20101001
  4. LEVETIRACETAM [Suspect]
     Indication: CONVULSION
     Dosage: DAILY DOSE: 1000 MG
     Route: 064
     Dates: end: 20101208
  5. FOLIC ACID [Concomitant]
     Indication: PREGNANCY
     Route: 064
     Dates: start: 20101001

REACTIONS (2)
  - PREMATURE BABY [None]
  - MATERNAL EXPOSURE DURING PREGNANCY [None]
